FAERS Safety Report 11845980 (Version 1)
Quarter: 2015Q4

REPORT INFORMATION
  Report Type: Spontaneous
  Country: US (occurrence: US)
  Receive Date: 20151217
  Receipt Date: 20151217
  Transmission Date: 20160305
  Serious: Yes (Other)
  Sender: FDA-Public Use
  Company Number: US-CELGENE-USA-2015121601

PATIENT
  Age: 65 Year
  Sex: Male
  Weight: 81.72 kg

DRUGS (7)
  1. REVLIMID [Suspect]
     Active Substance: LENALIDOMIDE
     Dosage: 5-10 MG
     Route: 048
     Dates: start: 201406
  2. ASPIRIN. [Concomitant]
     Active Substance: ASPIRIN
     Indication: CARDIAC DISORDER
     Dosage: 25 MILLIGRAM
     Route: 065
  3. HCTZ [Concomitant]
     Active Substance: HYDROCHLOROTHIAZIDE
     Indication: HYPERTENSION
     Dosage: 5 MILLIGRAM
     Route: 065
  4. CALCIUM 600 +D [Concomitant]
     Indication: VITAMIN SUPPLEMENTATION
     Dosage: 600
     Route: 065
  5. AMLODIPINE [Concomitant]
     Active Substance: AMLODIPINE BESYLATE
     Indication: HYPERTENSION
     Route: 065
  6. REVLIMID [Suspect]
     Active Substance: LENALIDOMIDE
     Indication: PLASMA CELL MYELOMA
     Route: 048
     Dates: start: 201307
  7. REVLIMID [Suspect]
     Active Substance: LENALIDOMIDE
     Route: 048
     Dates: start: 20150626, end: 2015

REACTIONS (1)
  - Laboratory test abnormal [Recovered/Resolved]

NARRATIVE: CASE EVENT DATE: 20151120
